FAERS Safety Report 5741043-5 (Version None)
Quarter: 2008Q2

REPORT INFORMATION
  Report Type: 
  Country: None (occurrence: None)
  Receive Date: 20080516
  Receipt Date: 20080505
  Transmission Date: 20081010
  Serious: Yes (Other)
  Sender: FDA-Public Use
  Company Number: GB-PFIZER INC-2008039449

PATIENT
  Age: 8 Year
  Sex: Female
  Weight: 28 kg

DRUGS (6)
  1. VORICONAZOLE [Suspect]
     Indication: BRONCHOPULMONARY ASPERGILLOSIS ALLERGIC
     Route: 048
     Dates: start: 20071210, end: 20080423
  2. CREON [Concomitant]
  3. PULMOZYME [Concomitant]
     Dosage: DAILY DOSE:2.5MG-FREQ:DAILY
  4. KETOVITE [Concomitant]
  5. MEROPENEM [Concomitant]
     Route: 042
  6. TOBRAMYCIN [Concomitant]
     Route: 042

REACTIONS (2)
  - PHOTOSENSITIVITY REACTION [None]
  - SKIN INJURY [None]
